FAERS Safety Report 7565525-9 (Version None)
Quarter: 2011Q2

REPORT INFORMATION
  Report Type: 
  Country: None (occurrence: None)
  Receive Date: 20110623
  Receipt Date: 20110616
  Transmission Date: 20111010
  Serious: Yes (Hospitalization)
  Sender: FDA-Public Use
  Company Number: FR-BRISTOL-MYERS SQUIBB COMPANY-15810161

PATIENT
  Age: 54 Year
  Sex: Female
  Weight: 50 kg

DRUGS (11)
  1. FOLIC ACID [Concomitant]
     Indication: PROPHYLAXIS
     Dates: start: 20110110
  2. VITAMIN B-12 [Concomitant]
     Indication: PROPHYLAXIS
     Dates: start: 20110110
  3. MIRTAZAPINE [Concomitant]
     Indication: DEPRESSION
     Dates: start: 19980101
  4. LEXOMIL [Concomitant]
     Indication: DEPRESSION
     Dates: start: 19980101
  5. CISPLATIN [Suspect]
     Indication: HEAD AND NECK CANCER
     Dosage: RECENT INFU:10MAY11 DAY 1 EVERY 21 DAYS
     Route: 042
     Dates: start: 20110117
  6. ALIMTA [Suspect]
     Indication: HEAD AND NECK CANCER
     Dosage: RECENT INFU:10MAY11 DAY 1 EVERY 21 DAYS
     Route: 042
     Dates: start: 20110117
  7. ZOLPIDEM [Concomitant]
     Indication: DEPRESSION
     Dates: start: 19980101
  8. CETUXIMAB [Suspect]
     Indication: HEAD AND NECK CANCER
     Dosage: RECENT INFU:24MAY11 DAY 1 OF CYCLE 1 ALSO 250MG/M2
     Route: 042
     Dates: start: 20110117, end: 20110117
  9. DEXAMETHASONE [Concomitant]
     Indication: PROPHYLAXIS
  10. POTASSIUM [Concomitant]
     Indication: HYPOKALAEMIA
     Dates: start: 20110117
  11. PROZAC [Concomitant]
     Indication: DEPRESSION
     Dates: start: 19980101

REACTIONS (1)
  - HYPOTENSION [None]
